FAERS Safety Report 18586536 (Version 1)
Quarter: 2020Q4

REPORT INFORMATION
  Report Type: Spontaneous
  Country: US (occurrence: US)
  Receive Date: 20201207
  Receipt Date: 20201207
  Transmission Date: 20210114
  Serious: Yes (Disabling)
  Sender: FDA-Public Use
  Company Number: None

PATIENT
  Sex: Female

DRUGS (1)
  1. OZEMPIC [Suspect]
     Active Substance: SEMAGLUTIDE
     Indication: TYPE 2 DIABETES MELLITUS
     Dosage: ?          QUANTITY:1 INJECTION(S);OTHER FREQUENCY:ONCE A WEEK;?
     Route: 058

REACTIONS (6)
  - Loss of personal independence in daily activities [None]
  - Nausea [None]
  - Insomnia [None]
  - Vomiting [None]
  - Abdominal pain upper [None]
  - Therapy interrupted [None]

NARRATIVE: CASE EVENT DATE: 20201207
